FAERS Safety Report 7996868-2 (Version None)
Quarter: 2011Q4

REPORT INFORMATION
  Report Type: 
  Country: None (occurrence: None)
  Receive Date: 20111221
  Receipt Date: 20111215
  Transmission Date: 20120403
  Serious: Yes (Other)
  Sender: FDA-Public Use
  Company Number: ES-BRISTOL-MYERS SQUIBB COMPANY-16295107

PATIENT
  Age: 49 Year
  Sex: Female

DRUGS (1)
  1. SPRYCEL [Suspect]
     Indication: CHRONIC MYELOID LEUKAEMIA
     Dosage: STRENGTH50MG
     Dates: start: 20110617

REACTIONS (5)
  - PYREXIA [None]
  - PARAESTHESIA [None]
  - HEADACHE [None]
  - ASTHENIA [None]
  - DECREASED APPETITE [None]
